FAERS Safety Report 8450235-6 (Version None)
Quarter: 2012Q2

REPORT INFORMATION
  Report Type: 
  Country: None (occurrence: None)
  Receive Date: 20120614
  Receipt Date: 20120614
  Transmission Date: 20120825
  Serious: Yes (Other)
  Sender: FDA-Public Use
  Company Number: None

PATIENT
  Age: 75 Year
  Sex: Male
  Weight: 127.0072 kg

DRUGS (2)
  1. PLAVIX [Suspect]
     Indication: DIZZINESS
     Dosage: 75MG DAILY PO
     Route: 048
     Dates: start: 20120328, end: 20120505
  2. PLAVIX [Suspect]
     Indication: HAEMORRHAGE
     Dosage: 75MG DAILY PO
     Route: 048
     Dates: start: 20120328, end: 20120505

REACTIONS (3)
  - ASTHENIA [None]
  - DIZZINESS [None]
  - ANAEMIA [None]
